FAERS Safety Report 6509323-3 (Version None)
Quarter: 2009Q4

REPORT INFORMATION
  Report Type: 
  Country: None (occurrence: None)
  Receive Date: 20091222
  Receipt Date: 20091214
  Transmission Date: 20100525
  Serious: Yes (Other)
  Sender: FDA-Public Use
  Company Number: DE-RANBAXY-2009RR-29744

PATIENT
  Age: 74 Year
  Sex: Female
  Weight: 65 kg

DRUGS (5)
  1. RANITIDINE [Suspect]
     Indication: ABDOMINAL DISCOMFORT
     Dosage: 30 MG, UNK
     Route: 048
     Dates: start: 20090901, end: 20091015
  2. ASPIRIN [Concomitant]
     Dosage: 1 DF, UNK
  3. DILZEM 120 RETARD [Concomitant]
     Indication: HYPERTENSION
     Dosage: 180 MG, UNK
     Route: 048
  4. ISICOM 100 MG [Concomitant]
     Indication: PARKINSON'S DISEASE
     Route: 048
  5. ZOP 7.5 [Concomitant]
     Indication: INSOMNIA
     Dosage: 3.75 MG, UNK
     Route: 048

REACTIONS (2)
  - LIVER DISORDER [None]
  - VASCULITIS [None]
